FAERS Safety Report 19394940 (Version 8)
Quarter: 2023Q2

REPORT INFORMATION
  Report Type: Report from Study
  Country: CN (occurrence: CN)
  Receive Date: 20210609
  Receipt Date: 20230523
  Transmission Date: 20230721
  Serious: Yes (Other)
  Sender: FDA-Public Use
  Company Number: CN-TAKEDA-2021TUS023664

PATIENT
  Age: 54 Year
  Sex: Female
  Weight: 61 kg

DRUGS (35)
  1. IXAZOMIB [Suspect]
     Active Substance: IXAZOMIB
     Indication: Plasma cell myeloma
     Dosage: 4 MILLIGRAM, Q2WEEKS
     Route: 048
     Dates: start: 20210205
  2. DEXAMETHASONE ACETATE [Suspect]
     Active Substance: DEXAMETHASONE ACETATE
     Indication: Plasma cell myeloma
     Dosage: 0.75 GRAM, QD
     Route: 048
     Dates: start: 20210205, end: 20210205
  3. DEXAMETHASONE ACETATE [Suspect]
     Active Substance: DEXAMETHASONE ACETATE
     Dosage: 0.75 GRAM, QD
     Route: 048
     Dates: start: 20210205, end: 20210206
  4. PALONOSETRON HYDROCHLORIDE [Concomitant]
     Active Substance: PALONOSETRON HYDROCHLORIDE
     Indication: Prophylaxis of nausea and vomiting
     Dosage: 0.25 MILLIGRAM, QD
     Route: 042
     Dates: start: 20210225, end: 20210226
  5. LEVOCARNITINE [Concomitant]
     Active Substance: LEVOCARNITINE
     Indication: Prophylaxis
     Dosage: 3 GRAM, QD
     Route: 042
     Dates: start: 20210225, end: 20210226
  6. PANTOPRAZOLE SODIUM [Concomitant]
     Active Substance: PANTOPRAZOLE SODIUM
     Indication: Prophylaxis
     Dosage: 40 MILLIGRAM, QD
     Route: 048
     Dates: start: 20210205, end: 20210205
  7. PANTOPRAZOLE SODIUM [Concomitant]
     Active Substance: PANTOPRAZOLE SODIUM
     Dosage: 80 MILLIGRAM, QD
     Route: 042
     Dates: start: 20210225, end: 20210226
  8. SODIUM BICARBONATE [Concomitant]
     Active Substance: SODIUM BICARBONATE
     Indication: Urine alkalinisation therapy
     Dosage: 0.5 GRAM, TID
     Route: 048
     Dates: start: 20210225, end: 20210226
  9. SODIUM BICARBONATE [Concomitant]
     Active Substance: SODIUM BICARBONATE
     Dosage: 125 MILLILITER
     Route: 041
     Dates: start: 20210423, end: 20210423
  10. CYCLOPHOSPHAMIDE [Concomitant]
     Active Substance: CYCLOPHOSPHAMIDE
     Indication: Plasma cell myeloma
     Dosage: 2 GRAM, QD
     Route: 042
     Dates: start: 20210226, end: 20210226
  11. MESNA [Concomitant]
     Active Substance: MESNA
     Indication: Prophylaxis
     Dosage: 0.4 GRAM
     Route: 042
     Dates: start: 20210226, end: 20210226
  12. NIFEDIPINE [Concomitant]
     Active Substance: NIFEDIPINE
     Indication: Hypertension
     Dosage: 30 MILLIGRAM, QD
     Route: 048
     Dates: start: 2017
  13. BICYCLOL [Concomitant]
     Active Substance: BICYCLOL
     Indication: Prophylaxis
     Dosage: 50 MILLIGRAM, QD
     Route: 048
     Dates: start: 20210205, end: 20210205
  14. CHLORHEXIDINE [Concomitant]
     Active Substance: CHLORHEXIDINE
     Indication: Infection prophylaxis
     Dosage: 10 MILLILITER, QD
     Route: 050
     Dates: start: 20210205, end: 20210205
  15. CHLORHEXIDINE ACETATE [Concomitant]
     Active Substance: CHLORHEXIDINE ACETATE
     Indication: Infection prophylaxis
     Dosage: 1 GRAM, QD
     Dates: start: 20210421, end: 20210421
  16. CHLORHEXIDINE GLUCONATE [Concomitant]
     Active Substance: CHLORHEXIDINE GLUCONATE
     Indication: Infection prophylaxis
     Dosage: 10 MILLILITER, QD
     Dates: start: 20210421, end: 20210421
  17. METRONIDAZOLE\SODIUM CHLORIDE [Concomitant]
     Active Substance: METRONIDAZOLE\SODIUM CHLORIDE
     Indication: Infection prophylaxis
     Dosage: 0.5 GRAM, QD
     Route: 041
     Dates: start: 20210421, end: 20210421
  18. MUPIROCIN [Concomitant]
     Active Substance: MUPIROCIN
     Indication: Infection prophylaxis
     Dosage: 1 GRAM, QD
     Dates: start: 20210421, end: 20210421
  19. LEVOFLOXACIN [Concomitant]
     Active Substance: LEVOFLOXACIN
     Indication: Infection prophylaxis
     Dosage: 1 GTT DROPS, QD
     Dates: start: 20210421, end: 20210421
  20. URSODIOL [Concomitant]
     Active Substance: URSODIOL
     Indication: Infection prophylaxis
     Dosage: 0.25 GRAM, QD
     Route: 048
     Dates: start: 20210421, end: 20210421
  21. URSODIOL [Concomitant]
     Active Substance: URSODIOL
     Indication: Gallbladder polyp
     Dosage: 0.25 GRAM, QD
     Route: 048
     Dates: start: 20210427, end: 20210427
  22. DEXAMETHASONE SODIUM PHOSPHATE [Concomitant]
     Active Substance: DEXAMETHASONE SODIUM PHOSPHATE
     Indication: Plasma cell myeloma
     Dosage: 2.5 MILLIGRAM, QD
     Route: 042
     Dates: start: 20210421, end: 20210421
  23. DEXAMETHASONE SODIUM PHOSPHATE [Concomitant]
     Active Substance: DEXAMETHASONE SODIUM PHOSPHATE
     Indication: Immunosuppression
     Dosage: 5 MILLIGRAM, QD
     Route: 042
     Dates: start: 20210423, end: 20210423
  24. LORATADINE [Concomitant]
     Active Substance: LORATADINE
     Indication: Allergy prophylaxis
     Dosage: 10 MILLIGRAM
     Route: 048
     Dates: start: 20210423, end: 20210423
  25. LORATADINE [Concomitant]
     Active Substance: LORATADINE
     Dosage: 10 MILLIGRAM
     Route: 048
     Dates: start: 20210501, end: 20210501
  26. FUROSEMIDE [Concomitant]
     Active Substance: FUROSEMIDE
     Indication: Polyuria
     Dosage: 20 MILLIGRAM
     Route: 042
     Dates: start: 20210423, end: 20210423
  27. ZOLEDRONIC ACID [Concomitant]
     Active Substance: ZOLEDRONIC ACID
     Indication: Hypercalcaemia
     Dosage: 4 MILLIGRAM, QD
     Route: 041
     Dates: start: 20210506, end: 20210506
  28. FAMCICLOVIR [Concomitant]
     Active Substance: FAMCICLOVIR
     Indication: Infection prophylaxis
     Dosage: 0.25 GRAM, QD
     Route: 048
     Dates: start: 20210506, end: 20210506
  29. FLUCONAZOLE [Concomitant]
     Active Substance: FLUCONAZOLE
     Indication: Infection prophylaxis
     Dosage: 50 MILLIGRAM, QD
     Route: 048
     Dates: start: 20210506, end: 20210506
  30. POTASSIUM CHLORIDE [Concomitant]
     Active Substance: POTASSIUM CHLORIDE
     Indication: Polyuria
     Dosage: 1 GRAM, BID
     Route: 048
     Dates: start: 20210308, end: 20210308
  31. POTASSIUM CHLORIDE [Concomitant]
     Active Substance: POTASSIUM CHLORIDE
     Indication: Hypokalaemia
     Dosage: 0.5 GRAM, QD
     Route: 048
     Dates: start: 20210429, end: 20210429
  32. LOXOPROFEN SODIUM [Concomitant]
     Active Substance: LOXOPROFEN SODIUM
     Indication: Prophylaxis
     Dosage: 60 MILLIGRAM, BID
     Route: 048
     Dates: start: 20210307, end: 20210307
  33. LIDOCAINE HYDROCHLORIDE [Concomitant]
     Active Substance: LIDOCAINE HYDROCHLORIDE
     Indication: Prophylaxis
     Dosage: 0.1 GRAM, QD
     Route: 058
     Dates: start: 20210419, end: 20210419
  34. HYDROTALCITE [Concomitant]
     Active Substance: HYDROTALCITE
     Indication: Acidosis
     Dosage: 5 GRAM, QD
     Route: 048
     Dates: start: 20210429, end: 20210429
  35. CALCIUM CARBONATE\CHOLECALCIFEROL [Concomitant]
     Active Substance: CALCIUM CARBONATE\CHOLECALCIFEROL
     Indication: Hypocalcaemia
     Dosage: 600 MILLIGRAM, QD
     Route: 048
     Dates: start: 20210429, end: 20210429

REACTIONS (9)
  - Hypokalaemia [Recovered/Resolved]
  - White blood cell count decreased [Recovered/Resolved]
  - Laryngeal pain [Recovering/Resolving]
  - Abdominal pain upper [Recovered/Resolved]
  - Hypocalcaemia [Recovered/Resolved]
  - Diarrhoea [Recovered/Resolved]
  - Nausea [Recovered/Resolved]
  - Vomiting [Recovered/Resolved]
  - Off label use [Unknown]

NARRATIVE: CASE EVENT DATE: 20210226
